FAERS Safety Report 16822606 (Version 4)
Quarter: 2020Q4

REPORT INFORMATION
  Report Type: Spontaneous
  Country: US (occurrence: US)
  Receive Date: 20190918
  Receipt Date: 20201221
  Transmission Date: 20210113
  Serious: Yes (Other)
  Sender: FDA-Public Use
  Company Number: US-PFIZER INC-2019402710

PATIENT
  Age: 83 Year
  Sex: Female

DRUGS (1)
  1. LYRICA [Suspect]
     Active Substance: PREGABALIN
     Dosage: UNK

REACTIONS (5)
  - Hypoacusis [Unknown]
  - Pain [Unknown]
  - Herpes zoster [Recovering/Resolving]
  - Product dose omission issue [Unknown]
  - Neuropathy peripheral [Recovering/Resolving]
